FAERS Safety Report 6432512-3 (Version None)
Quarter: 2009Q4

REPORT INFORMATION
  Report Type: 
  Country: None (occurrence: None)
  Receive Date: 20091109
  Receipt Date: 20091028
  Transmission Date: 20100525
  Serious: Yes (Hospitalization)
  Sender: FDA-Public Use
  Company Number: FI-CELGENEUS-055-C5013-09051853

PATIENT
  Sex: Male
  Weight: 60 kg

DRUGS (7)
  1. REVLIMID [Suspect]
     Indication: MULTIPLE MYELOMA
     Route: 048
     Dates: start: 20090305
  2. REVLIMID [Suspect]
     Route: 048
     Dates: start: 20090402, end: 20090422
  3. DEXAMETHASONE [Suspect]
     Indication: MULTIPLE MYELOMA
     Route: 048
     Dates: start: 20090305, end: 20090422
  4. OXYCONTIN [Suspect]
     Indication: PAIN
     Route: 048
     Dates: start: 20080428
  5. BONEFOS [Concomitant]
     Indication: OSTEOPOROSIS PROPHYLAXIS
     Route: 048
     Dates: start: 20060529
  6. SOMAC [Concomitant]
     Route: 048
     Dates: start: 20060529
  7. IDEOS [Concomitant]
     Route: 048
     Dates: start: 20060529

REACTIONS (1)
  - INTESTINAL OBSTRUCTION [None]
